FAERS Safety Report 7723040-3 (Version None)
Quarter: 2011Q3

REPORT INFORMATION
  Report Type: 
  Country: None (occurrence: None)
  Receive Date: 20110826
  Receipt Date: 20110822
  Transmission Date: 20111222
  Serious: Yes (Death)
  Sender: FDA-Public Use
  Company Number: DKLU1072642

PATIENT
  Age: 26 Year
  Sex: Male

DRUGS (8)
  1. COSMEGEN [Suspect]
     Indication: EWING'S SARCOMA
  2. COSMEGEN [Suspect]
     Indication: PRIMITIVE NEUROECTODERMAL TUMOUR
  3. CYCLOPHOSPHAMIDE [Suspect]
     Indication: PRIMITIVE NEUROECTODERMAL TUMOUR
  4. CYCLOPHOSPHAMIDE [Suspect]
     Indication: EWING'S SARCOMA
  5. DOXORUBICIN HCL [Suspect]
     Indication: PRIMITIVE NEUROECTODERMAL TUMOUR
  6. DOXORUBICIN HCL [Suspect]
     Indication: EWING'S SARCOMA
  7. VINCRISTINE [Suspect]
     Indication: PRIMITIVE NEUROECTODERMAL TUMOUR
  8. VINCRISTINE [Suspect]
     Indication: EWING'S SARCOMA

REACTIONS (4)
  - WHITE BLOOD CELL COUNT DECREASED [None]
  - PYREXIA [None]
  - GENERAL PHYSICAL HEALTH DETERIORATION [None]
  - DIARRHOEA [None]
